FAERS Safety Report 25259955 (Version 1)
Quarter: 2025Q2

REPORT INFORMATION
  Report Type: Spontaneous
  Country: US (occurrence: US)
  Receive Date: 20250501
  Receipt Date: 20250501
  Transmission Date: 20250717
  Serious: No
  Sender: MERCK SHARP & DOHME LLC
  Company Number: US-009507513-2274125

PATIENT
  Sex: Male

DRUGS (20)
  1. WINREVAIR [Suspect]
     Active Substance: SOTATERCEPT-CSRK
     Indication: Pulmonary arterial hypertension
     Route: 058
     Dates: start: 20241223
  2. WINREVAIR [Suspect]
     Active Substance: SOTATERCEPT-CSRK
  3. WINREVAIR [Suspect]
     Active Substance: SOTATERCEPT-CSRK
  4. WINREVAIR [Suspect]
     Active Substance: SOTATERCEPT-CSRK
  5. BIKTARVY [Concomitant]
     Active Substance: BICTEGRAVIR SODIUM\EMTRICITABINE\TENOFOVIR ALAFENAMIDE FUMARATE
  6. LIPITOR [Concomitant]
     Active Substance: ATORVASTATIN CALCIUM
  7. EPLERENONE [Concomitant]
     Active Substance: EPLERENONE
  8. TYLENOL [Concomitant]
     Active Substance: ACETAMINOPHEN
  9. FERROUS SULFATE [Concomitant]
     Active Substance: FERROUS SULFATE
  10. HYDROCORTISONE [Concomitant]
     Active Substance: HYDROCORTISONE
  11. GABAPENTIN [Concomitant]
     Active Substance: GABAPENTIN
  12. FISH OIL [Concomitant]
     Active Substance: FISH OIL
  13. TORSEMIDE [Concomitant]
     Active Substance: TORSEMIDE
  14. TYVASO [Concomitant]
     Active Substance: TREPROSTINIL
  15. COLCHICINE [Concomitant]
     Active Substance: COLCHICINE
  16. ELIQUIS [Concomitant]
     Active Substance: APIXABAN
  17. DAPTOMYCIN [Concomitant]
     Active Substance: DAPTOMYCIN
  18. MIDODRINE [Concomitant]
     Active Substance: MIDODRINE
  19. AMBRISENTAN [Concomitant]
     Active Substance: AMBRISENTAN
  20. DALVANCE [Concomitant]
     Active Substance: DALBAVANCIN HYDROCHLORIDE

REACTIONS (1)
  - Rash macular [Not Recovered/Not Resolved]
